FAERS Safety Report 22389767 (Version 1)
Quarter: 2023Q2

REPORT INFORMATION
  Report Type: Spontaneous
  Country: US (occurrence: US)
  Receive Date: 20230531
  Receipt Date: 20230531
  Transmission Date: 20230722
  Serious: Yes (Other)
  Sender: FDA-Public Use
  Company Number: US-AMGEN-USASP2023091494

PATIENT
  Age: 83 Year
  Sex: Male

DRUGS (2)
  1. XGEVA [Suspect]
     Active Substance: DENOSUMAB
     Indication: Prostate cancer metastatic
     Dosage: 120 MILLIGRAM /1.7 ML, Q3MO
     Route: 058
  2. LUPRON [Concomitant]
     Active Substance: LEUPROLIDE ACETATE
     Indication: Prostate cancer metastatic
     Dosage: UNK

REACTIONS (3)
  - Sinus operation [Recovered/Resolved]
  - Tooth extraction [Unknown]
  - Off label use [Unknown]

NARRATIVE: CASE EVENT DATE: 20230101
